FAERS Safety Report 6026573-3 (Version None)
Quarter: 2008Q4

REPORT INFORMATION
  Report Type: 
  Country: None (occurrence: None)
  Receive Date: 20081231
  Receipt Date: 20081217
  Transmission Date: 20090506
  Serious: Yes (Hospitalization)
  Sender: FDA-Public Use
  Company Number: KV200801242

PATIENT
  Age: 68 Year
  Sex: Female
  Weight: 79.4 kg

DRUGS (7)
  1. ISOSORBIDE MONONITRATE [Suspect]
     Indication: CHEST PAIN
     Dosage: 60 MG, BID, ORAL
     Route: 048
  2. PROCARDIA [Concomitant]
  3. ATENOLOL [Concomitant]
  4. PLAVIX [Concomitant]
  5. COUMADIN [Concomitant]
  6. NITRO /00003201/ (GLYCERYL TRINITRATE) [Concomitant]
  7. INSULIN (INSULIN) [Concomitant]

REACTIONS (4)
  - ATRIAL FIBRILLATION [None]
  - BLOOD PRESSURE INCREASED [None]
  - CHEST PAIN [None]
  - PRODUCT QUALITY ISSUE [None]
